FAERS Safety Report 5230389-5 (Version None)
Quarter: 2007Q1

REPORT INFORMATION
  Report Type: 
  Country: None (occurrence: None)
  Receive Date: 20070206
  Receipt Date: 20070129
  Transmission Date: 20070707
  Serious: Yes (Other)
  Sender: FDA-Public Use
  Company Number: US-PFIZER INC-2007008308

PATIENT
  Sex: Female
  Weight: 79.4 kg

DRUGS (9)
  1. XALATAN [Suspect]
     Indication: INTRAOCULAR PRESSURE INCREASED
     Route: 047
  2. XALATAN [Suspect]
     Indication: GLAUCOMA
  3. LIPITOR [Concomitant]
  4. CO-Q-10 [Concomitant]
  5. VITAMIN CAP [Concomitant]
  6. TYLENOL [Concomitant]
  7. ASCORBIC ACID [Concomitant]
  8. NAPHCON-A [Concomitant]
  9. HYDROCHLOROTHIAZIDE [Concomitant]

REACTIONS (5)
  - DRY EYE [None]
  - EYELASH DISCOLOURATION [None]
  - HYPERTENSION [None]
  - MADAROSIS [None]
  - OCULAR HYPERAEMIA [None]
